FAERS Safety Report 8399963 (Version 4)
Quarter: 2018Q4

REPORT INFORMATION
  Report Type: Spontaneous
  Country: GB (occurrence: GB)
  Receive Date: 20120210
  Receipt Date: 20181016
  Transmission Date: 20190205
  Serious: Yes (Death, Hospitalization, Other)
  Sender: FDA-Public Use
  Company Number: GB-ALEXION PHARMACEUTICALS INC.-A201200211

PATIENT
  Sex: Female

DRUGS (4)
  1. WARFARIN                           /00014802/ [Concomitant]
     Active Substance: WARFARIN
     Indication: PRODUCT USED FOR UNKNOWN INDICATION
     Dosage: UNK
     Route: 065
  2. PROTHROMBIN COMPLEX CONCENTRATE NOS [Suspect]
     Active Substance: COAGULATION FACTOR IX HUMAN\COAGULATION FACTOR VII HUMAN\COAGULATION FACTOR X HUMAN\PROTHROMBIN
     Indication: GASTROINTESTINAL HAEMORRHAGE
     Dosage: UNK
     Route: 065
  3. SOLIRIS [Suspect]
     Active Substance: ECULIZUMAB
     Indication: PAROXYSMAL NOCTURNAL HAEMOGLOBINURIA
     Dosage: UNK
     Route: 065
  4. SOLIRIS [Suspect]
     Active Substance: ECULIZUMAB
     Dosage: 900 MG, Q2W
     Route: 042
     Dates: end: 20120119

REACTIONS (10)
  - Arterial thrombosis [Fatal]
  - Haemoglobin decreased [Unknown]
  - Blood lactic acid increased [Unknown]
  - International normalised ratio increased [Unknown]
  - Hemiparesis [Unknown]
  - Cerebrovascular accident [Fatal]
  - Loss of consciousness [Unknown]
  - Melaena [Unknown]
  - Dysphagia [Unknown]
  - Gastrointestinal haemorrhage [Fatal]

NARRATIVE: CASE EVENT DATE: 201201
